FAERS Safety Report 7286238-7 (Version None)
Quarter: 2011Q1

REPORT INFORMATION
  Report Type: 
  Country: None (occurrence: None)
  Receive Date: 20110210
  Receipt Date: 20110202
  Transmission Date: 20110831
  Serious: Yes (Hospitalization)
  Sender: FDA-Public Use
  Company Number: PHHO2008DE10785

PATIENT
  Sex: Female
  Weight: 56 kg

DRUGS (5)
  1. EVEROLIMUS [Suspect]
     Dosage: 1 MG, BID
     Route: 048
     Dates: start: 20080901
  2. PANTOPRAZOLE [Concomitant]
  3. MYFORTIC [Suspect]
     Indication: RENAL TRANSPLANT
     Dosage: 720 MG, BID
     Route: 048
     Dates: start: 20080426, end: 20080828
  4. EVEROLIMUS [Suspect]
     Indication: RENAL TRANSPLANT
     Dosage: 0.75 MG, BID
     Route: 048
     Dates: start: 20080812
  5. MYFORTIC [Suspect]
     Dosage: 360 MG, BID

REACTIONS (2)
  - FEBRILE NEUTROPENIA [None]
  - LEUKOPENIA [None]
